FAERS Safety Report 18457528 (Version 2)
Quarter: 2020Q4

REPORT INFORMATION
  Report Type: Spontaneous
  Country: IT (occurrence: IT)
  Receive Date: 20201103
  Receipt Date: 20201127
  Transmission Date: 20210114
  Serious: Yes (Hospitalization, Other)
  Sender: FDA-Public Use
  Company Number: IT-ASTRAZENECA-2020SF42696

PATIENT
  Sex: Female

DRUGS (6)
  1. MONTEGEN [Concomitant]
     Active Substance: MONTELUKAST SODIUM
  2. FASENRA [Suspect]
     Active Substance: BENRALIZUMAB
     Indication: ASTHMA
     Dosage: 30.0MG UNKNOWN
     Route: 058
     Dates: start: 20190916
  3. OLMESARTAN/AMLODIPINE [Concomitant]
     Active Substance: AMLODIPINE BESYLATE\OLMESARTAN MEDOXOMIL
  4. FASENRA [Suspect]
     Active Substance: BENRALIZUMAB
     Indication: ASTHMA
     Dosage: EVERY 2 MONTHS UNKNOWN
     Route: 058
     Dates: start: 201912, end: 20200804
  5. REVINTY [Concomitant]
  6. TAPAZOLE [Concomitant]
     Active Substance: METHIMAZOLE

REACTIONS (1)
  - Guillain-Barre syndrome [Unknown]
